FAERS Safety Report 8886946 (Version 1)
Quarter: 2012Q4

REPORT INFORMATION
  Report Type: 
  Country: TR (occurrence: TR)
  Receive Date: 20121105
  Receipt Date: 20121105
  Transmission Date: 20130627
  Serious: Yes (Other)
  Sender: FDA-Public Use
  Company Number: PHHY2012TR099906

PATIENT
  Age: 48 Year
  Sex: Male

DRUGS (6)
  1. OMEPROL [Suspect]
     Indication: PROPHYLAXIS
     Route: 048
  2. ASIVIRAL [Suspect]
  3. BACTRIM [Suspect]
  4. MIKOSTATIN [Suspect]
  5. PROGRAF [Concomitant]
  6. STEROIDS NOS [Concomitant]

REACTIONS (11)
  - Hypersplenism [Recovering/Resolving]
  - Haemoglobin decreased [Recovering/Resolving]
  - Blood bilirubin increased [Recovering/Resolving]
  - White blood cell count decreased [Recovering/Resolving]
  - Platelet count decreased [Recovering/Resolving]
  - Pyrexia [Recovered/Resolved]
  - Platelet morphology abnormal [None]
  - Monocyte percentage increased [None]
  - Lymphocyte percentage decreased [None]
  - Coombs test positive [None]
  - Serum ferritin increased [None]
